FAERS Safety Report 6232611-5 (Version None)
Quarter: 2009Q2

REPORT INFORMATION
  Report Type: 
  Country: None (occurrence: None)
  Receive Date: 20090612
  Receipt Date: 20090612
  Transmission Date: 20091009
  Serious: Yes (Other)
  Sender: FDA-Public Use
  Company Number: None

PATIENT
  Age: 78 Year
  Sex: Female
  Weight: 99.7913 kg

DRUGS (1)
  1. PANTOPRAZOLE SODIUM [Suspect]
     Indication: ULCER
     Dosage: 1 TAB BD PO TOOK 24 TABS
     Route: 048
     Dates: start: 20090415, end: 20090427

REACTIONS (5)
  - DYSPNOEA [None]
  - NO THERAPEUTIC RESPONSE [None]
  - OEDEMA PERIPHERAL [None]
  - RASH PRURITIC [None]
  - SKIN EXFOLIATION [None]
